FAERS Safety Report 8464804-0 (Version None)
Quarter: 2012Q2

REPORT INFORMATION
  Report Type: 
  Country: None (occurrence: None)
  Receive Date: 20120626
  Receipt Date: 20120615
  Transmission Date: 20120825
  Serious: Yes (Other)
  Sender: FDA-Public Use
  Company Number: GB-US-EMD SERONO, INC.-7120627

PATIENT
  Weight: 60 kg

DRUGS (1)
  1. REBIF [Suspect]
     Indication: MULTIPLE SCLEROSIS
     Dates: start: 20070101

REACTIONS (7)
  - DECREASED APPETITE [None]
  - WEIGHT DECREASED [None]
  - THROMBOCYTOPENIC PURPURA [None]
  - HYPERTENSION [None]
  - HAEMOLYTIC URAEMIC SYNDROME [None]
  - RENAL FAILURE ACUTE [None]
  - PULMONARY OEDEMA [None]
